FAERS Safety Report 25157958 (Version 1)
Quarter: 2025Q2

REPORT INFORMATION
  Report Type: Spontaneous
  Country: US (occurrence: US)
  Receive Date: 20250404
  Receipt Date: 20250404
  Transmission Date: 20250716
  Serious: Yes (Hospitalization)
  Sender: JOHNSON AND JOHNSON
  Company Number: US-JNJFOC-20250374139

PATIENT
  Age: 60 Year

DRUGS (1)
  1. CARVYKTI [Suspect]
     Active Substance: CILTACABTAGENE AUTOLEUCEL
     Indication: Product used for unknown indication
     Dates: start: 20250313

REACTIONS (2)
  - Cytokine release syndrome [Unknown]
  - Constipation [Unknown]

NARRATIVE: CASE EVENT DATE: 20250322
